FAERS Safety Report 7638937-2 (Version None)
Quarter: 2011Q3

REPORT INFORMATION
  Report Type: 
  Country: None (occurrence: None)
  Receive Date: 20110727
  Receipt Date: 20110714
  Transmission Date: 20111222
  Serious: Yes (Disabling, Other)
  Sender: FDA-Public Use
  Company Number: US-ELI_LILLY_AND_COMPANY-US200910006904

PATIENT
  Sex: Male

DRUGS (13)
  1. THIAZIDE [Concomitant]
     Dosage: UNK, UNKNOWN
     Route: 065
     Dates: start: 20110201
  2. FORTEO [Suspect]
     Dosage: 20 UG, QD
  3. COUMADIN [Concomitant]
     Dosage: 2 MG, QD
  4. DOXYCYCLINE [Concomitant]
     Dosage: 100 MG, QD
     Route: 065
  5. FORTEO [Suspect]
     Indication: OSTEOPOROSIS
     Dosage: 20 UG, DAILY (1/D)
     Route: 065
     Dates: start: 20090701
  6. FORTEO [Suspect]
     Dosage: 20 UG, QD
     Route: 065
  7. OXYCONTIN [Concomitant]
     Indication: PAIN
     Dosage: UNK, UNKNOWN
     Route: 065
  8. FORTEO [Suspect]
     Dosage: 20 UG, DAILY (1/D)
  9. ANTIBIOTICS [Concomitant]
     Indication: STAPHYLOCOCCAL INFECTION
     Dosage: UNK, UNKNOWN
  10. ANALGESICS [Concomitant]
     Dosage: UNK, UNKNOWN
     Route: 065
  11. SYNTHROID [Concomitant]
     Dosage: 50 UG, UNK
     Route: 065
  12. FORTEO [Suspect]
     Dosage: 20 UG, QD
  13. LIPITOR [Concomitant]
     Dosage: 20 MG, QD
     Route: 065

REACTIONS (10)
  - MUSCLE INJURY [None]
  - PAIN [None]
  - ARTHRALGIA [None]
  - PELVIC PAIN [None]
  - SPINAL COMPRESSION FRACTURE [None]
  - RETINAL HAEMORRHAGE [None]
  - SPINAL FUSION SURGERY [None]
  - IMPAIRED HEALING [None]
  - HAEMATURIA [None]
  - PELVIC FRACTURE [None]
